FAERS Safety Report 5795258-0 (Version None)
Quarter: 2008Q2

REPORT INFORMATION
  Report Type: 
  Country: None (occurrence: None)
  Receive Date: 20080601
  Receipt Date: 20080129
  Transmission Date: 20081010
  Serious: No
  Sender: FDA-Public Use
  Company Number: US200801006571

PATIENT
  Age: 47 Year
  Sex: Female

DRUGS (7)
  1. BYETTA [Suspect]
     Dosage: 10 UG, SUBCUTANEOUS
     Route: 058
  2. METFORMIN HCL [Concomitant]
  3. HYDROCHLOROTHIAZIDE [Concomitant]
  4. PAROXETIN (PAROXETINE HYDROCHLORIDE) [Concomitant]
  5. LISINOPRIL /USA/ (LISINOPRIL) [Concomitant]
  6. LORATADINE [Concomitant]
  7. LOVASTATIN [Concomitant]

REACTIONS (2)
  - ABDOMINAL DISTENSION [None]
  - WEIGHT INCREASED [None]
